FAERS Safety Report 6201306-6 (Version None)
Quarter: 2009Q2

REPORT INFORMATION
  Report Type: 
  Country: None (occurrence: None)
  Receive Date: 20090526
  Receipt Date: 20090515
  Transmission Date: 20091009
  Serious: Yes (Hospitalization)
  Sender: FDA-Public Use
  Company Number: PHHY2008MX21948

PATIENT
  Sex: Female

DRUGS (5)
  1. DIOVAN [Suspect]
     Indication: HYPERTENSION
     Dosage: 2 DF PER DAY
     Route: 048
     Dates: start: 20020801
  2. DITREI [Concomitant]
  3. ANTISTAX [Concomitant]
  4. SOMAZINA [Concomitant]
  5. TAFIL [Concomitant]

REACTIONS (6)
  - CARDIOMYOPATHY [None]
  - DIABETES MELLITUS [None]
  - HYPERGLYCAEMIA [None]
  - HYPERTENSION [None]
  - HYPOTHYROIDISM [None]
  - THYROID DISORDER [None]
